FAERS Safety Report 18700224 (Version 1)
Quarter: 2021Q1

REPORT INFORMATION
  Report Type: Spontaneous
  Country: PK (occurrence: PK)
  Receive Date: 20210105
  Receipt Date: 20210105
  Transmission Date: 20210419
  Serious: Yes (Other)
  Sender: FDA-Public Use
  Company Number: PK-AMGEN-PAKSP2020213646

PATIENT
  Age: 37 Year
  Sex: Male

DRUGS (1)
  1. ENBREL [Suspect]
     Active Substance: ETANERCEPT
     Indication: ANKYLOSING SPONDYLITIS
     Dosage: 50 MILLIGRAM, QWK
     Route: 058

REACTIONS (5)
  - Dyspnoea exertional [Unknown]
  - Acute left ventricular failure [Recovering/Resolving]
  - Cardiac failure congestive [Unknown]
  - Lower respiratory tract infection [Unknown]
  - Cardiac failure [Unknown]
